FAERS Safety Report 19446483 (Version 1)
Quarter: 2021Q2

REPORT INFORMATION
  Report Type: Report from Study
  Country: US (occurrence: US)
  Receive Date: 20210622
  Receipt Date: 20210622
  Transmission Date: 20210717
  Serious: No
  Sender: FDA-Public Use
  Company Number: NVSC2021US129327

PATIENT
  Sex: Male

DRUGS (1)
  1. PROMACTA [Suspect]
     Active Substance: ELTROMBOPAG OLAMINE
     Indication: PRODUCT USED FOR UNKNOWN INDICATION
     Dosage: UNK UNK, QOD (VIA MOUTH)
     Route: 048

REACTIONS (4)
  - Fatigue [Recovering/Resolving]
  - Feeling abnormal [Unknown]
  - Platelet count increased [Unknown]
  - Platelet count abnormal [Unknown]
